FAERS Safety Report 7250907-5 (Version None)
Quarter: 2011Q1

REPORT INFORMATION
  Report Type: 
  Country: None (occurrence: None)
  Receive Date: 20110128
  Receipt Date: 20110124
  Transmission Date: 20110831
  Serious: Yes (Other)
  Sender: FDA-Public Use
  Company Number: A0907440A

PATIENT
  Sex: Female

DRUGS (4)
  1. ALBUTEROL [Concomitant]
     Indication: ASTHMA
     Route: 055
  2. CLONAZEPAM [Concomitant]
     Indication: ANXIETY
     Dosage: 1MG PER DAY
     Route: 065
  3. ADVAIR [Suspect]
     Indication: ASTHMA
     Dosage: 1PUFF TWICE PER DAY
     Route: 055
  4. QUETIAPINE [Concomitant]
     Indication: INSOMNIA
     Dosage: 25MG AT NIGHT
     Route: 065

REACTIONS (3)
  - CHOKING [None]
  - PRODUCT QUALITY ISSUE [None]
  - COUGH [None]
